FAERS Safety Report 8084283-5 (Version None)
Quarter: 2012Q1

REPORT INFORMATION
  Report Type: 
  Country: None (occurrence: None)
  Receive Date: 20120128
  Receipt Date: 20110304
  Transmission Date: 20120608
  Serious: No
  Sender: FDA-Public Use
  Company Number: US-ABBOTT-11P-163-0709955-00

PATIENT
  Sex: Male
  Weight: 129.39 kg

DRUGS (3)
  1. HUMIRA [Suspect]
     Indication: CROHN'S DISEASE
     Dates: start: 20100301
  2. BETAPACE [Concomitant]
     Indication: ATRIAL FIBRILLATION
  3. COUMADIN [Concomitant]
     Indication: PRODUCT USED FOR UNKNOWN INDICATION

REACTIONS (3)
  - ABDOMINAL PAIN [None]
  - NIGHT SWEATS [None]
  - INFLAMMATORY BOWEL DISEASE [None]
